FAERS Safety Report 19179868 (Version 1)
Quarter: 2021Q2

REPORT INFORMATION
  Report Type: Spontaneous
  Country: JP (occurrence: JP)
  Receive Date: 20210426
  Receipt Date: 20210426
  Transmission Date: 20210717
  Serious: Yes (Other)
  Sender: FDA-Public Use
  Company Number: JP-GLAXOSMITHKLINE-JP2021JPN088233

PATIENT
  Age: 78 Year
  Sex: Female

DRUGS (3)
  1. LEVOTHYROXINE. [Concomitant]
     Active Substance: LEVOTHYROXINE
     Indication: HYPOTHYROIDISM
     Dosage: UNK
  2. VALTREX [Suspect]
     Active Substance: VALACYCLOVIR HYDROCHLORIDE
     Indication: BELL^S PALSY
     Dosage: UNK
     Route: 048
  3. ESOMEPRAZOLE. [Suspect]
     Active Substance: ESOMEPRAZOLE MAGNESIUM
     Indication: PROPHYLAXIS AGAINST GASTROINTESTINAL ULCER
     Dosage: UNK

REACTIONS (6)
  - Altered state of consciousness [Unknown]
  - Confusional state [Unknown]
  - Hyponatraemia [Recovering/Resolving]
  - Hypouricaemia [Recovering/Resolving]
  - Product use in unapproved indication [Unknown]
  - Inappropriate antidiuretic hormone secretion [Unknown]
